FAERS Safety Report 11500252 (Version 1)
Quarter: 2015Q3

REPORT INFORMATION
  Report Type: Spontaneous
  Country: GR (occurrence: GR)
  Receive Date: 20150914
  Receipt Date: 20150914
  Transmission Date: 20151125
  Serious: Yes (Life-Threatening, Hospitalization)
  Sender: FDA-Public Use
  Company Number: GR-FRESENIUS KABI-FK201504294

PATIENT
  Sex: Male

DRUGS (1)
  1. CEFUROXIM FRESENIUS 1500 MG (CEFUROXIME SODIUM) (CEFUROXIME SODIUM) [Suspect]
     Active Substance: CEFUROXIME
     Indication: ANTIBIOTIC PROPHYLAXIS
     Route: 065
     Dates: start: 20150713, end: 20150713

REACTIONS (1)
  - Anaphylactic shock [Recovering/Resolving]

NARRATIVE: CASE EVENT DATE: 20150713
